FAERS Safety Report 8369100-8 (Version None)
Quarter: 2012Q2

REPORT INFORMATION
  Report Type: 
  Country: None (occurrence: None)
  Receive Date: 20120518
  Receipt Date: 20120515
  Transmission Date: 20120825
  Serious: Yes (Death)
  Sender: FDA-Public Use
  Company Number: US-SANOFI-AVENTIS-2012SA026710

PATIENT
  Age: 49 Year
  Sex: Female
  Weight: 69.9 kg

DRUGS (5)
  1. COREG [Concomitant]
     Dates: start: 20050101
  2. LIPITOR [Concomitant]
     Dates: start: 20040101
  3. FUROSEMIDE [Concomitant]
     Dates: start: 20050101
  4. INSULIN GLARGINE [Suspect]
     Dosage: DOSE:25 UNIT(S)
     Route: 058
     Dates: start: 20040101
  5. INSULIN LISPRO [Suspect]
     Dosage: DOSE:37 UNIT(S)
     Route: 058
     Dates: start: 20090101

REACTIONS (1)
  - DEATH [None]
